FAERS Safety Report 16902451 (Version 2)
Quarter: 2019Q4

REPORT INFORMATION
  Report Type: Report from Study
  Country: CZ (occurrence: CZ)
  Receive Date: 20191010
  Receipt Date: 20191025
  Transmission Date: 20200122
  Serious: Yes (Hospitalization)
  Sender: FDA-Public Use
  Company Number: CZ-ROCHE-2434915

PATIENT
  Age: 75 Year
  Sex: Male
  Weight: 83 kg

DRUGS (15)
  1. VENETOCLAX. [Suspect]
     Active Substance: VENETOCLAX
     Route: 048
     Dates: start: 20150518, end: 20150524
  2. BETALOC ZOK [Concomitant]
     Active Substance: METOPROLOL SUCCINATE
     Route: 065
  3. VENETOCLAX. [Suspect]
     Active Substance: VENETOCLAX
     Route: 048
     Dates: start: 20150525, end: 20190927
  4. VENETOCLAX. [Suspect]
     Active Substance: VENETOCLAX
     Indication: CHRONIC LYMPHOCYTIC LEUKAEMIA
     Route: 048
     Dates: start: 20150427, end: 20150503
  5. VENETOCLAX. [Suspect]
     Active Substance: VENETOCLAX
     Route: 048
     Dates: start: 20150504, end: 20150510
  6. FOSINOPRILUM NATRICUM [Concomitant]
     Indication: HYPERTENSION
     Route: 065
     Dates: start: 2013
  7. PREDUCTAL [Concomitant]
     Active Substance: TRIMETAZIDINE DIHYDROCHLORIDE
     Route: 065
     Dates: start: 2017
  8. ANOPYRIN [Concomitant]
     Active Substance: ASPIRIN
     Route: 065
     Dates: start: 2017, end: 20190927
  9. HELICID [OMEPRAZOLE] [Concomitant]
     Route: 065
     Dates: start: 20181030
  10. RITUXIMAB. [Suspect]
     Active Substance: RITUXIMAB
     Indication: CHRONIC LYMPHOCYTIC LEUKAEMIA
     Route: 042
     Dates: start: 20150601, end: 20190802
  11. LEVOTHYROXINUM NATRICUM [Concomitant]
     Indication: HYPOTHYROIDISM
     Route: 065
     Dates: start: 2007
  12. MONOPRIL [Concomitant]
     Active Substance: FOSINOPRIL SODIUM
     Route: 065
     Dates: start: 2013
  13. VENETOCLAX. [Suspect]
     Active Substance: VENETOCLAX
     Route: 048
     Dates: start: 20150511, end: 20150517
  14. LETROX [Concomitant]
     Active Substance: LEVOTHYROXINE SODIUM
     Dosage: 100-500 MG
     Route: 065
     Dates: start: 2007
  15. ALLOPURINOL. [Concomitant]
     Active Substance: ALLOPURINOL

REACTIONS (1)
  - Jaundice cholestatic [Recovered/Resolved]

NARRATIVE: CASE EVENT DATE: 20190927
